FAERS Safety Report 8524492-1 (Version None)
Quarter: 2012Q3

REPORT INFORMATION
  Report Type: 
  Country: None (occurrence: None)
  Receive Date: 20120716
  Receipt Date: 20120716
  Transmission Date: 20120928
  Serious: Yes (Hospitalization)
  Sender: FDA-Public Use
  Company Number: None

PATIENT
  Sex: Female
  Weight: 66 kg

DRUGS (8)
  1. SIMVASTATIN [Concomitant]
  2. ATIVAN [Concomitant]
  3. METFORMIN HYDROCHLORIDE [Concomitant]
  4. ONGLYZA [Concomitant]
  5. LEVOTHYROXINE SODIUM [Concomitant]
  6. LISINOPRIL [Concomitant]
  7. CARBOPLATIN [Suspect]
     Dosage: TWO DOSES HELD DUE TO ANC BELOW 800 ON 5/17/2012 AND 6/1/2012
  8. PACLITAXEL [Suspect]
     Dosage: TWO DOSES HELD AS ANC BELOW 800 ON 5/17/2012 AND 6/8/2012

REACTIONS (4)
  - PYREXIA [None]
  - NAUSEA [None]
  - VOMITING [None]
  - DIARRHOEA [None]
